FAERS Safety Report 9230729 (Version 2)
Quarter: 2013Q2

REPORT INFORMATION
  Report Type: Spontaneous
  Country: US (occurrence: US)
  Receive Date: 20130415
  Receipt Date: 20130419
  Transmission Date: 20140414
  Serious: Yes (Hospitalization)
  Sender: FDA-Public Use
  Company Number: US-TEVA-398186USA

PATIENT
  Sex: 0

DRUGS (1)
  1. AMOXICILLIN [Suspect]
     Dosage: 500 (7045585)

REACTIONS (1)
  - Malaise [Unknown]
